FAERS Safety Report 8231718-0 (Version None)
Quarter: 2012Q1

REPORT INFORMATION
  Report Type: 
  Country: None (occurrence: None)
  Receive Date: 20120323
  Receipt Date: 20120312
  Transmission Date: 20120608
  Serious: Yes (Hospitalization, Other)
  Sender: FDA-Public Use
  Company Number: JP-PFIZER INC-2012055525

PATIENT
  Age: 55 Year
  Sex: Male
  Weight: 60 kg

DRUGS (2)
  1. CEFAZOLIN SODIUM [Concomitant]
     Indication: ENTEROCOLITIS
     Dosage: 3 G/DAY
     Route: 048
     Dates: start: 20120204, end: 20120227
  2. ZOSYN [Suspect]
     Indication: PNEUMONIA
     Dosage: 13.5 G
     Route: 041
     Dates: start: 20120204, end: 20120214

REACTIONS (1)
  - FEBRILE NEUTROPENIA [None]
